FAERS Safety Report 10528658 (Version 6)
Quarter: 2017Q1

REPORT INFORMATION
  Report Type: Spontaneous
  Country: US (occurrence: US)
  Receive Date: 20141020
  Receipt Date: 20170202
  Transmission Date: 20170428
  Serious: Yes (Hospitalization, Other)
  Sender: FDA-Public Use
  Company Number: US-PFIZER INC-2014282841

PATIENT
  Age: 75 Year
  Sex: Female
  Weight: 52 kg

DRUGS (3)
  1. ATORVASTATIN CALCIUM. [Suspect]
     Active Substance: ATORVASTATIN CALCIUM
     Indication: BLOOD TRIGLYCERIDES ABNORMAL
     Dosage: 20 MG, (1PILL) A DAY (AT NIGHT)
     Route: 048
     Dates: start: 2014, end: 2014
  2. ATORVASTATIN CALCIUM. [Suspect]
     Active Substance: ATORVASTATIN CALCIUM
     Indication: BLOOD CHOLESTEROL INCREASED
  3. METOPROLOL. [Concomitant]
     Active Substance: METOPROLOL
     Indication: BLOOD PRESSURE ABNORMAL
     Dosage: UNK, 2X/DAY
     Dates: start: 20141106

REACTIONS (17)
  - Middle insomnia [Recovered/Resolved]
  - Pain in extremity [Recovered/Resolved]
  - Muscle tightness [Recovered/Resolved]
  - Paralysis [Unknown]
  - Abasia [Unknown]
  - Malaise [Recovered/Resolved]
  - Drug hypersensitivity [Recovered/Resolved]
  - Dysstasia [Unknown]
  - Muscle spasms [Recovered/Resolved]
  - Cerebrovascular accident [Recovered/Resolved]
  - Muscular weakness [Recovered/Resolved]
  - Drug intolerance [Unknown]
  - Reaction to drug excipients [Not Recovered/Not Resolved]
  - Myalgia [Recovered/Resolved]
  - Liver disorder [Recovered/Resolved]
  - Drug ineffective [Unknown]
  - Joint lock [Recovered/Resolved]

NARRATIVE: CASE EVENT DATE: 20140329
